FAERS Safety Report 9877890 (Version 1)
Quarter: 2014Q1

REPORT INFORMATION
  Report Type: Spontaneous
  Country: GB (occurrence: GB)
  Receive Date: 20140206
  Receipt Date: 20140206
  Transmission Date: 20141002
  Serious: Yes (Other)
  Sender: FDA-Public Use
  Company Number: GB-TEVA-460627ISR

PATIENT
  Age: 3 Year
  Sex: Female
  Weight: 12.2 kg

DRUGS (4)
  1. MONTELUKAST [Suspect]
     Dates: start: 20140120
  2. HYDROCORTISONE [Concomitant]
     Dates: start: 20131129, end: 20131206
  3. SALBUTAMOL [Concomitant]
     Dates: start: 20131212, end: 20140109
  4. CLENIL MODULITE [Concomitant]
     Dates: start: 20131230

REACTIONS (3)
  - Abnormal dreams [Recovered/Resolved]
  - Pyrexia [Recovered/Resolved]
  - Feeling abnormal [Recovered/Resolved]
